FAERS Safety Report 4797520-7 (Version None)
Quarter: 2005Q4

REPORT INFORMATION
  Report Type: 
  Country: None (occurrence: None)
  Receive Date: 20051013
  Receipt Date: 20050920
  Transmission Date: 20060501
  Serious: Yes (Other)
  Sender: FDA-Public Use
  Company Number: US-ABBOTT-05P-163-0311392-00

PATIENT
  Sex: Female
  Weight: 71.278 kg

DRUGS (8)
  1. HUMIRA [Suspect]
     Indication: RHEUMATOID ARTHRITIS
     Route: 058
     Dates: start: 20031001
  2. HYDROCODONE [Concomitant]
     Indication: ARTHRALGIA
  3. HYDROCODONE [Concomitant]
     Indication: FIBROMYALGIA
  4. FENTANYL [Concomitant]
     Indication: RHEUMATOID ARTHRITIS
     Route: 061
     Dates: start: 20050701
  5. FENTANYL [Concomitant]
     Indication: FIBROMYALGIA
  6. SERTRALINE HYDROCHLORIDE [Concomitant]
     Indication: DEPRESSION
     Route: 048
     Dates: start: 20020101
  7. ZOLPIDEM TARTRATE [Concomitant]
     Indication: SLEEP DISORDER
     Route: 048
  8. PREDNISONE [Concomitant]
     Indication: JOINT INJURY
     Route: 050

REACTIONS (6)
  - ABASIA [None]
  - ARTHRALGIA [None]
  - BACK PAIN [None]
  - BLOOD CHOLESTEROL INCREASED [None]
  - BLOOD TRIGLYCERIDES INCREASED [None]
  - NECK PAIN [None]
